FAERS Safety Report 8574650-5 (Version None)
Quarter: 2012Q3

REPORT INFORMATION
  Report Type: 
  Country: None (occurrence: None)
  Receive Date: 20120807
  Receipt Date: 20120718
  Transmission Date: 20120928
  Serious: No
  Sender: FDA-Public Use
  Company Number: US-009507513-1207USA008458

PATIENT

DRUGS (7)
  1. RIBAVIRIN [Suspect]
     Dosage: 1200/DAY
  2. TYLENOL (CAPLET) [Concomitant]
  3. VITAMINS (UNSPECIFIED) [Concomitant]
  4. VICTRELIS [Suspect]
     Dosage: 800 MG, TID (EVERY 7-9 HOURS) WITH FOOD
     Route: 048
  5. PEG-INTRON [Suspect]
     Dosage: 150 RP, UNK
  6. ASPIRIN [Concomitant]
  7. BENAZEPRIL HYDROCHLORIDE [Concomitant]

REACTIONS (5)
  - APTYALISM [None]
  - WHITE BLOOD CELL COUNT DECREASED [None]
  - DEHYDRATION [None]
  - PARANASAL SINUS HYPERSECRETION [None]
  - INFLUENZA LIKE ILLNESS [None]
